FAERS Safety Report 7728357-4 (Version None)
Quarter: 2011Q3

REPORT INFORMATION
  Report Type: 
  Country: None (occurrence: None)
  Receive Date: 20110905
  Receipt Date: 20110831
  Transmission Date: 20111222
  Serious: Yes (Other)
  Sender: FDA-Public Use
  Company Number: PHHY2011US38715

PATIENT
  Sex: Male
  Weight: 126.98 kg

DRUGS (5)
  1. METFORMIN HCL [Concomitant]
     Dosage: 500 MG
  2. DIOVAN [Concomitant]
     Dosage: 160 MG
  3. NORVASC [Concomitant]
     Dosage: 5 MG,
  4. GLEEVEC [Suspect]
     Dosage: 400 MG, DAILY
     Route: 048
  5. HYDROCHLOROTHIAZIDE [Concomitant]
     Dosage: 12.5 MG

REACTIONS (4)
  - BLISTER [None]
  - FATIGUE [None]
  - DIARRHOEA [None]
  - GALLBLADDER NON-FUNCTIONING [None]
